FAERS Safety Report 19446866 (Version 1)
Quarter: 2021Q2

REPORT INFORMATION
  Report Type: Spontaneous
  Country: US (occurrence: US)
  Receive Date: 20210619
  Receipt Date: 20210619
  Transmission Date: 20210717
  Serious: No
  Sender: FDA-Public Use
  Company Number: None

PATIENT
  Age: 76 Year
  Sex: Male
  Weight: 82.3 kg

DRUGS (3)
  1. LENALIDOMIDE (CC?5013) [Suspect]
     Active Substance: LENALIDOMIDE
     Dates: end: 20200316
  2. DEXAMETHASONE. [Suspect]
     Active Substance: DEXAMETHASONE
     Dates: end: 20181108
  3. VELCADE [Suspect]
     Active Substance: BORTEZOMIB
     Dates: end: 20181108

REACTIONS (6)
  - Megakaryocytes decreased [None]
  - Upper respiratory tract infection [None]
  - Leukaemia [None]
  - Blast cell count increased [None]
  - Marrow hyperplasia [None]
  - White blood cell count decreased [None]

NARRATIVE: CASE EVENT DATE: 20200507
